FAERS Safety Report 9052420 (Version 1)
Quarter: 2013Q1

REPORT INFORMATION
  Report Type: Spontaneous
  Country: AU (occurrence: AU)
  Receive Date: 20130207
  Receipt Date: 20130207
  Transmission Date: 20140127
  Serious: Yes (Other)
  Sender: FDA-Public Use
  Company Number: AU-JNJFOC-20130203162

PATIENT
  Sex: 0

DRUGS (4)
  1. FENTANYL CITRATE [Suspect]
     Indication: POSTOPERATIVE ANALGESIA
     Dosage: AS REQUIRED
     Route: 042
  2. PARACETAMOL [Suspect]
     Route: 048
  3. PARACETAMOL [Suspect]
     Indication: POSTOPERATIVE ANALGESIA
     Route: 048
  4. PARACETAMOL [Suspect]
     Indication: POSTOPERATIVE ANALGESIA
     Dosage: AS REQUIRED
     Route: 042

REACTIONS (1)
  - Respiratory rate decreased [Unknown]
